FAERS Safety Report 18504560 (Version 2)
Quarter: 2020Q4

REPORT INFORMATION
  Report Type: Spontaneous
  Country: IN (occurrence: IN)
  Receive Date: 20201114
  Receipt Date: 20201119
  Transmission Date: 20210114
  Serious: Yes (Other)
  Sender: FDA-Public Use
  Company Number: NVSC2020IN303888

PATIENT
  Sex: Male

DRUGS (1)
  1. BROLUCIZUMAB. [Suspect]
     Active Substance: BROLUCIZUMAB
     Indication: DIABETIC RETINAL OEDEMA
     Dosage: UNK UNK, PRN
     Route: 031
     Dates: start: 20201030

REACTIONS (6)
  - Vitritis [Unknown]
  - Eye pain [Unknown]
  - Headache [Unknown]
  - Vitreous floaters [Unknown]
  - Ocular hyperaemia [Unknown]
  - Product use in unapproved indication [Unknown]
